FAERS Safety Report 8472382-5 (Version None)
Quarter: 2012Q2

REPORT INFORMATION
  Report Type: 
  Country: None (occurrence: None)
  Receive Date: 20120627
  Receipt Date: 20110601
  Transmission Date: 20120825
  Serious: No
  Sender: FDA-Public Use
  Company Number: US-AMGEN-USASP2011028576

PATIENT
  Age: 15 Year
  Sex: Male
  Weight: 58.957 kg

DRUGS (1)
  1. PROCRIT [Suspect]
     Indication: ANAEMIA
     Dosage: 4000 IU, QWK
     Route: 058
     Dates: start: 20101201

REACTIONS (1)
  - DRUG DOSE OMISSION [None]
